FAERS Safety Report 23837607 (Version 1)
Quarter: 2024Q2

REPORT INFORMATION
  Report Type: Spontaneous
  Country: US (occurrence: None)
  Receive Date: 20240508
  Receipt Date: 20240508
  Transmission Date: 20240715
  Serious: Yes (Life-Threatening)
  Sender: FDA-Public Use
  Company Number: None

PATIENT
  Age: 33 Year
  Sex: Female
  Weight: 85.5 kg

DRUGS (3)
  1. LEVETIRACETAM [Suspect]
     Active Substance: LEVETIRACETAM
     Indication: Vertigo
     Dosage: FREQUENCY : TWICE A DAY;?
     Route: 048
     Dates: start: 20240322, end: 20240429
  2. NORTREL [Suspect]
     Active Substance: ETHINYL ESTRADIOL\NORETHINDRONE
  3. Nature Made Prenatal vitamin [Concomitant]

REACTIONS (7)
  - Irritability [None]
  - Abnormal dreams [None]
  - Insomnia [None]
  - Anger [None]
  - Nausea [None]
  - Abdominal discomfort [None]
  - Vertigo [None]

NARRATIVE: CASE EVENT DATE: 20240502
